FAERS Safety Report 9749251 (Version 2)
Quarter: 2014Q1

REPORT INFORMATION
  Report Type: Spontaneous
  Country: US (occurrence: US)
  Receive Date: 20131212
  Receipt Date: 20140312
  Transmission Date: 20141002
  Serious: No
  Sender: FDA-Public Use
  Company Number: US-INCYTE CORPORATION-2013IN002690

PATIENT
  Age: 67 Year
  Sex: Male

DRUGS (8)
  1. JAKAFI [Suspect]
     Indication: MYELOFIBROSIS
     Dosage: 20 MG, BID
     Route: 048
     Dates: start: 20131023, end: 201312
  2. JAKAFI [Suspect]
     Dosage: 10 MG, BID
     Route: 048
     Dates: start: 20131216
  3. LASIX /00032601/ [Suspect]
     Indication: GENERALISED OEDEMA
  4. ASPIRIN [Concomitant]
     Dosage: 81 MG, QD
     Route: 048
  5. ATORVASTATIN [Concomitant]
     Dosage: 10 MG, QD
     Route: 048
  6. ATENOLOL [Concomitant]
     Dosage: 25 MG, QD
     Route: 048
  7. JANUVIA [Concomitant]
     Dosage: 100 MG, QD
     Route: 048
  8. METFORMIN [Concomitant]
     Dosage: 500 MG, BID
     Route: 048

REACTIONS (6)
  - Fatigue [Unknown]
  - Generalised oedema [Unknown]
  - Acute prerenal failure [Unknown]
  - Blood uric acid increased [Unknown]
  - Dizziness [Unknown]
  - Headache [Unknown]
